FAERS Safety Report 12770018 (Version 1)
Quarter: 2016Q3

REPORT INFORMATION
  Report Type: Spontaneous
  Country: TR (occurrence: TR)
  Receive Date: 20160922
  Receipt Date: 20160922
  Transmission Date: 20161109
  Serious: Yes (Congenital Anomaly, Other)
  Sender: FDA-Public Use
  Company Number: TR-ALKEM LABORATORIES LIMITED-TR-ALKEM-2016-00188

PATIENT
  Sex: Female
  Weight: 3.28 kg

DRUGS (1)
  1. LAMOTRIGINE. [Suspect]
     Active Substance: LAMOTRIGINE
     Indication: PRODUCT USED FOR UNKNOWN INDICATION
     Dosage: 500 MG, QD

REACTIONS (4)
  - Pulmonary hypertension [Unknown]
  - Foetal exposure during pregnancy [Unknown]
  - Coarctation of the aorta [Unknown]
  - Ventricular septal defect [Unknown]
